FAERS Safety Report 25255754 (Version 1)
Quarter: 2025Q2

REPORT INFORMATION
  Report Type: Spontaneous
  Country: US (occurrence: US)
  Receive Date: 20250430
  Receipt Date: 20250430
  Transmission Date: 20250716
  Serious: Yes (Hospitalization, Other)
  Sender: YUNG SHIN PHARMACEUTICAL INDUSTRIAL
  Company Number: US-Yung Shin Pharmaceutical Ind.  Co., Ltd.-2175837

PATIENT
  Age: 50 Year
  Sex: Female

DRUGS (10)
  1. CLONIDINE HYDROCHLORIDE [Suspect]
     Active Substance: CLONIDINE HYDROCHLORIDE
     Indication: Product used for unknown indication
  2. GABAPENTIN [Suspect]
     Active Substance: GABAPENTIN
  3. TRAZODONE [Suspect]
     Active Substance: TRAZODONE HYDROCHLORIDE
  4. BUPROPION [Suspect]
     Active Substance: BUPROPION
  5. TAMSULOSIN HYDROCHLORIDE [Suspect]
     Active Substance: TAMSULOSIN HYDROCHLORIDE
  6. OLANZAPINE [Suspect]
     Active Substance: OLANZAPINE
  7. MAGNESIUM OXIDE [Suspect]
     Active Substance: MAGNESIUM OXIDE
  8. DULOXETINE [Suspect]
     Active Substance: DULOXETINE
  9. METHOCARBAMOL [Suspect]
     Active Substance: METHOCARBAMOL
  10. CYCLOBENZAPRINE [Suspect]
     Active Substance: CYCLOBENZAPRINE

REACTIONS (2)
  - Distributive shock [Recovering/Resolving]
  - Intentional overdose [Unknown]
